FAERS Safety Report 20141714 (Version 1)
Quarter: 2021Q4

REPORT INFORMATION
  Report Type: Report from Study
  Country: ES (occurrence: ES)
  Receive Date: 20211202
  Receipt Date: 20211202
  Transmission Date: 20220304
  Serious: Yes (Other)
  Sender: FDA-Public Use
  Company Number: ES-GLAXOSMITHKLINE-ES2021EME018700

PATIENT
  Age: 58 Year
  Sex: Female

DRUGS (1)
  1. MEPOLIZUMAB [Suspect]
     Active Substance: MEPOLIZUMAB
     Indication: Asthma
     Dosage: 100 MG/ML, Z (EVERY 28 DAYS)
     Route: 058
     Dates: start: 20200615

REACTIONS (6)
  - Asthmatic crisis [Not Recovered/Not Resolved]
  - Cough [Unknown]
  - Wheezing [Not Recovered/Not Resolved]
  - Sputum increased [Unknown]
  - Fatigue [Not Recovered/Not Resolved]
  - Productive cough [Not Recovered/Not Resolved]

NARRATIVE: CASE EVENT DATE: 20210112
